FAERS Safety Report 20576135 (Version 1)
Quarter: 2022Q1

REPORT INFORMATION
  Report Type: Spontaneous
  Country: FR (occurrence: FR)
  Receive Date: 20220310
  Receipt Date: 20220310
  Transmission Date: 20220424
  Serious: Yes (Other)
  Sender: FDA-Public Use
  Company Number: ALC2022FR001245

PATIENT

DRUGS (1)
  1. SIMBRINZA [Suspect]
     Active Substance: BRIMONIDINE TARTRATE\BRINZOLAMIDE
     Indication: Glaucoma
     Dosage: 1 GOUTTE PAR JOUR
     Route: 047
     Dates: start: 202107, end: 20211224

REACTIONS (15)
  - Loss of consciousness [Recovered/Resolved]
  - Aphasia [Recovered/Resolved]
  - Nightmare [Recovered/Resolved]
  - Polyuria [Recovered/Resolved]
  - Back pain [Recovered/Resolved]
  - Tinnitus [Recovered/Resolved]
  - Neck pain [Recovered/Resolved]
  - Memory impairment [Recovered/Resolved]
  - Insomnia [Recovered/Resolved]
  - Vertigo [Recovered/Resolved]
  - Eye pain [Recovered/Resolved]
  - Asthenia [Recovered/Resolved]
  - Somnolence [Recovered/Resolved]
  - Dysgeusia [Recovered/Resolved]
  - Vision blurred [Recovered/Resolved]

NARRATIVE: CASE EVENT DATE: 20210701
